FAERS Safety Report 23673638 (Version 8)
Quarter: 2024Q3

REPORT INFORMATION
  Report Type: Spontaneous
  Country: GR (occurrence: GR)
  Receive Date: 20240326
  Receipt Date: 20240924
  Transmission Date: 20241017
  Serious: No
  Sender: PFIZER
  Company Number: GR-PFIZER INC-PV202400032192

PATIENT
  Age: 4 Year
  Sex: Female
  Weight: 14 kg

DRUGS (1)
  1. GENOTROPIN [Suspect]
     Active Substance: SOMATROPIN
     Indication: Short stature
     Dosage: 0.4 MG X3 DAYS AND 0.6 MG X 3 DAYS AND 1 DAY OFF / 6 DAYS
     Route: 058
     Dates: start: 20231209

REACTIONS (3)
  - Device use error [Unknown]
  - Device breakage [Unknown]
  - Poor quality device used [Unknown]

NARRATIVE: CASE EVENT DATE: 20240307
